FAERS Safety Report 16643003 (Version 1)
Quarter: 2019Q3

REPORT INFORMATION
  Report Type: Spontaneous
  Country: US (occurrence: US)
  Receive Date: 20190729
  Receipt Date: 20190729
  Transmission Date: 20191004
  Serious: No
  Sender: FDA-Public Use
  Company Number: US-TAKEDA-2019TUS045425

PATIENT
  Age: 70 Year
  Sex: Male

DRUGS (1)
  1. NINLARO [Suspect]
     Active Substance: IXAZOMIB CITRATE
     Indication: PLASMA CELL MYELOMA
     Dosage: 4 MILLIGRAM, 1/WEEK
     Route: 048
     Dates: start: 201906

REACTIONS (3)
  - Platelet count decreased [Unknown]
  - Ocular hyperaemia [Unknown]
  - Rash [Unknown]

NARRATIVE: CASE EVENT DATE: 20190715
